FAERS Safety Report 21732447 (Version 2)
Quarter: 2022Q4

REPORT INFORMATION
  Report Type: Spontaneous
  Country: JP (occurrence: JP)
  Receive Date: 20221215
  Receipt Date: 20221219
  Transmission Date: 20230112
  Serious: Yes (Death, Other)
  Sender: FDA-Public Use
  Company Number: JP-ABBVIE-4234120

PATIENT
  Age: 53 Year
  Sex: Female

DRUGS (2)
  1. VENCLEXTA [Suspect]
     Active Substance: VENETOCLAX
     Indication: Acute myeloid leukaemia
     Route: 048
  2. AZACITIDINE [Concomitant]
     Active Substance: AZACITIDINE
     Indication: Acute myeloid leukaemia

REACTIONS (4)
  - Death [Fatal]
  - Febrile neutropenia [Unknown]
  - Pneumonia [Unknown]
  - Acute graft versus host disease [Unknown]
